FAERS Safety Report 4464029-X (Version None)
Quarter: 2004Q4

REPORT INFORMATION
  Report Type: 
  Country: None (occurrence: None)
  Receive Date: 20041001
  Receipt Date: 20040924
  Transmission Date: 20050328
  Serious: Yes (Hospitalization)
  Sender: FDA-Public Use
  Company Number: DE-ABBOTT-04P-062-0274935-00

PATIENT
  Sex: Male
  Weight: 79 kg

DRUGS (9)
  1. KLACID TABLETS [Suspect]
     Indication: PNEUMONIA
     Route: 048
     Dates: start: 20040219, end: 20040228
  2. GEMCITABINE [Suspect]
     Indication: BRONCHIAL CARCINOMA
     Route: 058
     Dates: start: 20040205
  3. AMPICILLIN SODIUM/SULBACTAM SODIUM [Suspect]
     Indication: PNEUMONIA
     Route: 048
     Dates: start: 20040219, end: 20040228
  4. ARELIX MITE [Concomitant]
     Indication: HYPERTENSION
     Route: 048
  5. BISOPROLOL FUMARATE [Concomitant]
     Indication: HYPERTENSION
     Route: 048
  6. CIBADREX [Concomitant]
     Indication: HYPERTENSION
     Route: 048
  7. EZETROL TABLET [Concomitant]
     Indication: HYPERLIPIDAEMIA
     Route: 048
     Dates: end: 20040405
  8. LOKOL [Concomitant]
     Indication: HYPERLIPIDAEMIA
     Route: 048
     Dates: end: 20040405
  9. AMLODIPINE BESYLATE [Concomitant]
     Indication: HYPERTENSION
     Route: 048

REACTIONS (5)
  - ASTHENIA [None]
  - CLOSTRIDIAL INFECTION [None]
  - CLOSTRIDIUM COLITIS [None]
  - NAUSEA [None]
  - VOMITING [None]
